FAERS Safety Report 4402131-9 (Version None)
Quarter: 2004Q3

REPORT INFORMATION
  Report Type: 
  Country: None (occurrence: None)
  Receive Date: 20040719
  Receipt Date: 20040719
  Transmission Date: 20050211
  Serious: Yes (Death)
  Sender: FDA-Public Use
  Company Number: None

PATIENT
  Sex: Female
  Weight: 116.1208 kg

DRUGS (2)
  1. RISPERIDONE [Suspect]
     Indication: PSYCHOTIC DISORDER
     Dosage: 0.5 MG PO AM , W MG POHS
     Route: 048
     Dates: start: 20040522, end: 20040523
  2. SERTRALINE HCL [Suspect]
     Indication: DEPRESSION
     Dosage: 50 MG PO AM
     Route: 048
     Dates: start: 20040522, end: 20040523

REACTIONS (11)
  - ARRHYTHMIA [None]
  - CATATONIA [None]
  - COMA [None]
  - FEELING COLD [None]
  - JOINT STIFFNESS [None]
  - MUSCULOSKELETAL STIFFNESS [None]
  - PARANOIA [None]
  - PSYCHOTIC DISORDER [None]
  - PULSE ABSENT [None]
  - SELECTIVE MUTISM [None]
  - TREATMENT NONCOMPLIANCE [None]
